FAERS Safety Report 15748068 (Version 2)
Quarter: 2018Q4

REPORT INFORMATION
  Report Type: Spontaneous
  Country: NL (occurrence: NL)
  Receive Date: 20181221
  Receipt Date: 20181221
  Transmission Date: 20190205
  Serious: Yes (Hospitalization)
  Sender: FDA-Public Use
  Company Number: NL-TEVA-2018-NL-989510

PATIENT
  Age: 81 Year
  Sex: Female

DRUGS (14)
  1. PRADAXA [Interacting]
     Active Substance: DABIGATRAN ETEXILATE MESYLATE
     Indication: ATRIAL FIBRILLATION
     Dosage: 220 MILLIGRAM DAILY;
     Route: 065
  2. METOCLOPRAMIDE 10 MG [Concomitant]
     Active Substance: METOCLOPRAMIDE
     Dosage: ZN TOT 3D1T
     Route: 065
  3. ATORVASTATINE 40 MG [Concomitant]
     Dosage: 40 MILLIGRAM DAILY; 1D1T (WAS FIRST 1D2T, ON ADVICE REDUCED)
     Route: 065
  4. AMIODARON TABLET, 200 MG (MILLIGRAM) [Interacting]
     Active Substance: AMIODARONE
     Dosage: 200 MILLIGRAM DAILY; FIRST WEEK 3X DAY 1, THEN 1X DAILY 1 TABLET
     Route: 065
  5. METOPROLO 25 1D1T [Concomitant]
     Dosage: 25 MILLIGRAM DAILY; 1DD1
     Route: 065
  6. FUROSEMIDE 40 MG 1D1T [Concomitant]
     Dosage: 40 MILLIGRAM DAILY;
     Route: 065
  7. AMIODARON TABLET, 200 MG (MILLIGRAM) [Suspect]
     Active Substance: AMIODARONE
     Dosage: FIRST WEEK 3X DAY 1, THEN 1X DAILY 1 TABLET
     Route: 065
     Dates: start: 20181109, end: 20181119
  8. KALIUMCHLORIDE 600 MG 3D1T [Concomitant]
     Dosage: 1800 MILLIGRAM DAILY;
     Route: 065
  9. METOPROLOL 50 [Concomitant]
     Dosage: 50 MILLIGRAM DAILY; 1DD1
     Route: 065
  10. EZETIMIB 10 MG [Concomitant]
     Dosage: 10 MILLIGRAM DAILY;
     Route: 065
  11. FERROFUMARAAT 200 [Concomitant]
     Dosage: 400 MILLIGRAM DAILY;
     Route: 065
  12. ESOMEPRAZOL 20 MG [Concomitant]
     Dosage: 20 MILLIGRAM DAILY;
     Route: 065
  13. CHOLECALCIFEROL 880IE [Concomitant]
     Dosage: 1 DOSAGE FORMS DAILY; 1DD1
     Route: 065
  14. PERINDOPRIL 2MG [Concomitant]
     Active Substance: PERINDOPRIL
     Dosage: 2 MILLIGRAM DAILY; 1DD1
     Route: 065

REACTIONS (2)
  - Drug interaction [Recovering/Resolving]
  - Haemorrhage [Recovering/Resolving]

NARRATIVE: CASE EVENT DATE: 20181119
